FAERS Safety Report 9082621 (Version 3)
Quarter: 2013Q2

REPORT INFORMATION
  Report Type: Spontaneous
  Country: JP (occurrence: JP)
  Receive Date: 20130131
  Receipt Date: 20130419
  Transmission Date: 20140414
  Serious: Yes (Hospitalization, Other)
  Sender: FDA-Public Use
  Company Number: JP-009507513-1301JPN013512

PATIENT
  Age: 69 Year
  Sex: Male
  Weight: 55 kg

DRUGS (20)
  1. PEGINTRON [Suspect]
     Indication: CHRONIC HEPATITIS C
     Dosage: 1.8 MICROGRAM PER KILOGRAM, QW. FORMULATION: INJECTION.
     Route: 058
     Dates: start: 20121102, end: 20121218
  2. PEGINTRON [Suspect]
     Dosage: 1.45 MICROGRAM PER KILOGRAM, QW. FORMULATION: INJECTION.
     Route: 058
     Dates: start: 20121219, end: 20121227
  3. PEGINTRON [Suspect]
     Dosage: 1.45 MICROGRAM PER KILOGRAM, QW. FORMULATION: INJECTION.
     Route: 058
     Dates: start: 20130104
  4. REBETOL [Suspect]
     Indication: CHRONIC HEPATITIS C
     Dosage: 800 MG, QD
     Route: 048
     Dates: start: 20121102, end: 20121121
  5. REBETOL [Suspect]
     Dosage: 600 MG, QD
     Route: 048
     Dates: start: 20121122, end: 20121128
  6. REBETOL [Suspect]
     Dosage: 800 MG, QD
     Route: 048
     Dates: start: 20121129, end: 20121205
  7. REBETOL [Suspect]
     Dosage: 600 MG, QD
     Route: 048
     Dates: start: 20121206, end: 20121212
  8. REBETOL [Suspect]
     Dosage: 800 MG, QD
     Route: 048
     Dates: start: 20121213, end: 20130103
  9. REBETOL [Suspect]
     Dosage: 400 MG, QD
     Route: 048
     Dates: start: 20130104, end: 20130130
  10. REBETOL [Suspect]
     Dosage: 500 MG, QD
     Route: 048
     Dates: start: 20130131, end: 20130206
  11. REBETOL [Suspect]
     Dosage: 600 MG, QD
     Route: 048
     Dates: start: 20130207
  12. TELAVIC [Suspect]
     Indication: CHRONIC HEPATITIS C
     Dosage: 2250 MG, QD
     Route: 048
     Dates: start: 20121102, end: 20121115
  13. TELAVIC [Suspect]
     Dosage: 1500 MG, QD
     Route: 048
     Dates: start: 20121116, end: 20121212
  14. TELAVIC [Suspect]
     Dosage: 1000 MG, QD
     Route: 048
     Dates: start: 20121213, end: 20121230
  15. DIOVAN [Suspect]
     Dosage: 40 MG, QD
     Route: 048
     Dates: end: 20130131
  16. RIKKUNSHI-TO [Suspect]
     Indication: ADVERSE REACTION
     Dosage: 3 PACKS/ DAY. FORMULATION: GRA
     Route: 048
     Dates: start: 20121227, end: 20130109
  17. EPADEL S [Concomitant]
     Dosage: 2 PACKS/ DAY
     Route: 048
     Dates: start: 20121102, end: 20130109
  18. FEBURIC [Concomitant]
     Indication: PROPHYLAXIS
     Dosage: 20 MG, QD
     Route: 048
     Dates: start: 20121102, end: 20130109
  19. PREDNISOLONE [Concomitant]
     Dosage: 30 MG, QD
     Route: 048
     Dates: start: 20130109, end: 20130115
  20. OMEPRAL [Concomitant]
     Indication: PROPHYLAXIS
     Dosage: 20 MG, QD
     Route: 048
     Dates: start: 20130109

REACTIONS (3)
  - Stevens-Johnson syndrome [Recovering/Resolving]
  - White blood cell count decreased [Recovered/Resolved]
  - Decreased appetite [Recovered/Resolved]
